FAERS Safety Report 7505423-X (Version None)
Quarter: 2011Q2

REPORT INFORMATION
  Report Type: 
  Country: None (occurrence: None)
  Receive Date: 20110526
  Receipt Date: 20110513
  Transmission Date: 20111010
  Serious: No
  Sender: FDA-Public Use
  Company Number: PHHY2011US41282

PATIENT
  Sex: Female

DRUGS (7)
  1. TASIGNA [Suspect]
     Dosage: 200 MG, BID
     Route: 048
  2. ACIPHEX [Concomitant]
     Dosage: 20 MG, UNK
  3. LORTAB [Concomitant]
  4. VITAMIN D [Concomitant]
  5. LUNESTA [Concomitant]
     Dosage: 2 MG, UNK
  6. VERAPAMIL [Concomitant]
  7. SAVELLA [Concomitant]

REACTIONS (2)
  - VOMITING [None]
  - NAUSEA [None]
